FAERS Safety Report 8985385 (Version 1)
Quarter: 2012Q4

REPORT INFORMATION
  Report Type: 
  Country: DE (occurrence: DE)
  Receive Date: 20121226
  Receipt Date: 20121226
  Transmission Date: 20130627
  Serious: Yes (Other)
  Sender: FDA-Public Use
  Company Number: DE-NICOBRDEVP-2012-22187

PATIENT
  Sex: Female
  Weight: 3 kg

DRUGS (4)
  1. DICLOFENAC (UNKNOWN) [Suspect]
     Indication: HEADACHE
     Dosage: UNK
     Route: 064
  2. HYPNOREX [Concomitant]
     Indication: BIPOLAR I DISORDER
     Dosage: 800 mg, daily
     Route: 064
     Dates: start: 20110504, end: 20120118
  3. VENLAFAXIN [Concomitant]
     Indication: DEPRESSION
     Dosage: 300 mg, daily
     Route: 064
     Dates: start: 20110504, end: 20120118
  4. DOPEGYT [Concomitant]
     Indication: PRE-ECLAMPSIA
     Dosage: 750 mg, daily
     Route: 064

REACTIONS (3)
  - Neonatal respiratory distress syndrome [Recovered/Resolved]
  - Atrial septal defect [Unknown]
  - Right ventricular hypertrophy [Recovering/Resolving]
